FAERS Safety Report 10637284 (Version 1)
Quarter: 2014Q4

REPORT INFORMATION
  Report Type: Spontaneous
  Country: US (occurrence: None)
  Receive Date: 20141204
  Receipt Date: 20141204
  Transmission Date: 20150529
  Serious: No
  Sender: FDA-Public Use
  Company Number: None

PATIENT
  Age: 41 Year
  Sex: Male
  Weight: 95.26 kg

DRUGS (1)
  1. LOSARTAN [Suspect]
     Active Substance: LOSARTAN
     Indication: HYPERTENSION
     Dosage: 1 PILL ONCE DAILY TAKEN BY MOUTH
     Route: 048
     Dates: start: 20141022, end: 20141129

REACTIONS (5)
  - Insomnia [None]
  - Faeces hard [None]
  - Agitation [None]
  - Abnormal dreams [None]
  - Rectal haemorrhage [None]

NARRATIVE: CASE EVENT DATE: 20141103
